FAERS Safety Report 18975993 (Version 2)
Quarter: 2021Q4

REPORT INFORMATION
  Report Type: Spontaneous
  Country: FR (occurrence: FR)
  Receive Date: 20210306
  Receipt Date: 20211202
  Transmission Date: 20220303
  Serious: Yes (Other)
  Sender: FDA-Public Use
  Company Number: FR-AFSSAPS-MP20210054

PATIENT
  Age: 62 Year
  Sex: Female

DRUGS (17)
  1. DOMPERIDONE [Suspect]
     Active Substance: DOMPERIDONE
     Indication: Nausea
     Dosage: UNK, AS NECESSARY
     Route: 048
     Dates: start: 20201022
  2. FLUCONAZOLE [Suspect]
     Active Substance: FLUCONAZOLE
     Indication: Sepsis
     Dosage: 400 MILLIGRAM, ONCE A DAY
     Route: 041
     Dates: start: 20201022, end: 20201028
  3. LINEZOLID [Suspect]
     Active Substance: LINEZOLID
     Indication: Sepsis
     Dosage: 1200 MILLIGRAM, ONCE A DAY
     Route: 041
     Dates: start: 20201022, end: 20201027
  4. MEROPENEM [Suspect]
     Active Substance: MEROPENEM
     Indication: Sepsis
     Dosage: UNK
     Route: 041
     Dates: start: 20201006, end: 20201020
  5. ONDANSETRON [Suspect]
     Active Substance: ONDANSETRON
     Indication: Nausea
     Dosage: 12 MILLIGRAM, ONCE A DAY
     Route: 041
     Dates: start: 20201022, end: 20201103
  6. ONDANSETRON [Suspect]
     Active Substance: ONDANSETRON
     Indication: Fistula
  7. ONDANSETRON [Suspect]
     Active Substance: ONDANSETRON
     Indication: Fistula
     Dosage: UNK
     Route: 048
     Dates: start: 20201022, end: 20201103
  8. OCTREOTIDE [Suspect]
     Active Substance: OCTREOTIDE
     Indication: Fistula
     Dosage: 600 MICROGRAM, ONCE A DAY
     Route: 041
     Dates: start: 20200924
  9. OCTREOTIDE [Suspect]
     Active Substance: OCTREOTIDE
     Dosage: UNK
     Route: 048
     Dates: start: 20200924
  10. PANTOPRAZOLE SODIUM [Suspect]
     Active Substance: PANTOPRAZOLE SODIUM
     Indication: Product used for unknown indication
     Dosage: 40 MILLIGRAM, ONCE A DAY
     Route: 048
     Dates: start: 20200924, end: 20201025
  11. MOTILIUM [Suspect]
     Active Substance: DOMPERIDONE
     Indication: Nausea
     Dosage: SI BESOIN
     Route: 048
     Dates: start: 20201022
  12. VANCOMYCIN [Suspect]
     Active Substance: VANCOMYCIN
     Indication: Infection
     Dosage: 2 GRAM, ONCE A DAY
     Route: 041
     Dates: start: 20200926, end: 20201006
  13. TAZOBACTAM [Suspect]
     Active Substance: TAZOBACTAM
     Indication: Sepsis
     Dosage: 4G/500MG 2/JRS
     Route: 041
     Dates: start: 20200926, end: 20201022
  14. MYCAMINE [Suspect]
     Active Substance: MICAFUNGIN SODIUM
     Indication: Candida sepsis
     Dosage: 100 MILLIGRAM, ONCE A DAY
     Route: 041
     Dates: start: 20201006, end: 20201022
  15. PIPERACILLIN SODIUM [Suspect]
     Active Substance: PIPERACILLIN SODIUM
     Indication: Sepsis
     Dosage: 4G/500MG 2/JRS
     Route: 041
     Dates: start: 20200926, end: 20201022
  16. PIPERACILLIN SODIUM\TAZOBACTAM SODIUM [Suspect]
     Active Substance: PIPERACILLIN SODIUM\TAZOBACTAM SODIUM
     Indication: Product used for unknown indication
     Dosage: UNK
     Route: 048
     Dates: start: 20200926
  17. LINEZOLID [Suspect]
     Active Substance: LINEZOLID
     Indication: Sepsis
     Dosage: 1200  MILLIGRAM, ONCE A DAY
     Route: 048
     Dates: start: 20201022, end: 20201027

REACTIONS (4)
  - Dermatitis exfoliative generalised [Not Recovered/Not Resolved]
  - Rash morbilliform [Not Recovered/Not Resolved]
  - Product use issue [Unknown]
  - Off label use [Unknown]

NARRATIVE: CASE EVENT DATE: 20200926
